FAERS Safety Report 9431979 (Version 4)
Quarter: 2013Q4

REPORT INFORMATION
  Report Type: Spontaneous
  Country: US (occurrence: US)
  Receive Date: 20130731
  Receipt Date: 20131003
  Transmission Date: 20140711
  Serious: Yes (Life-Threatening, Other)
  Sender: FDA-Public Use
  Company Number: US-JNJFOC-20130712190

PATIENT
  Age: 74 Year
  Sex: Male
  Weight: 71 kg

DRUGS (10)
  1. ZYTIGA [Suspect]
     Indication: PROSTATE CANCER
     Dosage: 250 MG TABLET X 3
     Route: 048
     Dates: start: 20130712, end: 20130712
  2. ZYTIGA [Suspect]
     Indication: PROSTATE CANCER
     Dosage: 250 MG TABLET X 4
     Route: 048
     Dates: start: 20130516, end: 20130626
  3. GABAPENTIN [Concomitant]
     Indication: PRODUCT USED FOR UNKNOWN INDICATION
     Route: 065
  4. OXYCODONE [Concomitant]
     Indication: PAIN
     Route: 065
  5. PREDNISONE [Concomitant]
     Indication: PROSTATE CANCER
     Route: 065
  6. LEUPROLIDE ACETATE [Concomitant]
     Indication: PROSTATE CANCER
     Route: 058
     Dates: start: 20130613
  7. OMEPRAZOLE [Concomitant]
     Indication: PRODUCT USED FOR UNKNOWN INDICATION
     Dosage: DAILY
     Route: 065
  8. CALCIUM 500 + D [Concomitant]
     Indication: PRODUCT USED FOR UNKNOWN INDICATION
     Route: 065
  9. ZOFRAN [Concomitant]
     Indication: VOMITING
     Route: 065
  10. ZOFRAN [Concomitant]
     Indication: NAUSEA
     Route: 065

REACTIONS (4)
  - Liver function test abnormal [Recovered/Resolved]
  - Dysphagia [Recovered/Resolved]
  - Motor dysfunction [Recovered/Resolved]
  - Chromaturia [Recovered/Resolved]
